FAERS Safety Report 5013465-1 (Version None)
Quarter: 2006Q2

REPORT INFORMATION
  Report Type: 
  Country: None (occurrence: None)
  Receive Date: 20060530
  Receipt Date: 20060522
  Transmission Date: 20061013
  Serious: Yes (Hospitalization)
  Sender: FDA-Public Use
  Company Number: NL-SANOFI-SYNTHELABO-F01200601266

PATIENT
  Sex: Male

DRUGS (7)
  1. ERBITUX [Suspect]
     Indication: COLORECTAL CANCER
     Dosage: 400 MG/M2 DAY 1 OF CYCLE 1, THEREAFTER 250 MG/M2 WEEKLY
     Route: 041
     Dates: start: 20060512, end: 20060512
  2. AVASTIN [Suspect]
     Indication: COLORECTAL CANCER
     Route: 041
     Dates: start: 20060512, end: 20060512
  3. CAPECITABINE [Suspect]
     Indication: COLORECTAL CANCER
     Dosage: DAYS 1-14 (1250 MG/M2 AFTER CYCLE 6) 1800 MG
     Route: 048
     Dates: start: 20060512
  4. OXALIPLATIN [Suspect]
     Indication: COLORECTAL CANCER
     Route: 041
     Dates: start: 20060512, end: 20060512
  5. DICLOFENAC POTASSIUM [Concomitant]
     Dosage: UNK
  6. FENTANYL [Concomitant]
     Dosage: UNK
  7. ONDANSETRON HCL [Concomitant]
     Dosage: UNK

REACTIONS (3)
  - ASTHENIA [None]
  - DYSKINESIA [None]
  - EPILEPSY [None]
